FAERS Safety Report 10877531 (Version 1)
Quarter: 2015Q1

REPORT INFORMATION
  Report Type: Spontaneous
  Country: US (occurrence: None)
  Receive Date: 20150224
  Receipt Date: 20150224
  Transmission Date: 20150721
  Serious: Yes (Disabling)
  Sender: FDA-Public Use
  Company Number: None

PATIENT
  Age: 55 Year
  Sex: Female

DRUGS (4)
  1. VERAPAMIL [Suspect]
     Active Substance: VERAPAMIL HYDROCHLORIDE
     Indication: SNEDDON^S SYNDROME
     Dosage: TRIED 240MG FOR SEVERAL WEEKS 180 MG, 1 CAPSULE @ BEDTIME, BY MOUTH
     Route: 048
     Dates: start: 20150112
  2. BABY ASPIRIN [Concomitant]
     Active Substance: ASPIRIN
  3. LAXATIVES [Concomitant]
     Active Substance: UNSPECIFIED INGREDIENT
  4. VERAPAMIL [Concomitant]
     Active Substance: VERAPAMIL HYDROCHLORIDE

REACTIONS (7)
  - Throat tightness [None]
  - Hypersensitivity [None]
  - Pain in extremity [None]
  - Scratch [None]
  - Pruritus [None]
  - Haemorrhage [None]
  - Constipation [None]

NARRATIVE: CASE EVENT DATE: 20150112
